FAERS Safety Report 7703911-4 (Version None)
Quarter: 2011Q3

REPORT INFORMATION
  Report Type: 
  Country: None (occurrence: None)
  Receive Date: 20110823
  Receipt Date: 20110817
  Transmission Date: 20111222
  Serious: Yes (Other)
  Sender: FDA-Public Use
  Company Number: US-ROCHE-769703

PATIENT
  Sex: Male
  Weight: 81.6 kg

DRUGS (3)
  1. ACCUTANE [Suspect]
     Route: 065
     Dates: start: 20020104, end: 20020226
  2. ACCUTANE [Suspect]
     Indication: ACNE
     Route: 065
     Dates: start: 20010301, end: 20010801
  3. ACCUTANE [Suspect]
     Route: 065
     Dates: start: 20030126, end: 20030226

REACTIONS (3)
  - COLITIS ULCERATIVE [None]
  - INFLAMMATORY BOWEL DISEASE [None]
  - STRESS [None]
